FAERS Safety Report 11661034 (Version 2)
Quarter: 2015Q4

REPORT INFORMATION
  Report Type: Spontaneous
  Country: US (occurrence: US)
  Receive Date: 20151026
  Receipt Date: 20151105
  Transmission Date: 20160304
  Serious: No
  Sender: FDA-Public Use
  Company Number: US-HORIZON-RAV-0094-2015

PATIENT
  Age: 45 Year
  Sex: Female

DRUGS (6)
  1. PROTONIX [Concomitant]
     Active Substance: PANTOPRAZOLE SODIUM
  2. L-ARGININE [Concomitant]
     Active Substance: ARGININE
  3. CYCLINEX [Concomitant]
  4. RAVICTI [Suspect]
     Active Substance: GLYCEROL PHENYLBUTYRATE
     Indication: UREA CYCLE ENZYME DEFICIENCY
     Dosage: 6 ML THREE TIMES DAILY
     Dates: start: 201505
  5. SODIUM BENZOATE [Concomitant]
     Active Substance: SODIUM BENZOATE
  6. RIFAXIMIN [Concomitant]
     Active Substance: RIFAXIMIN

REACTIONS (2)
  - Hypoaesthesia [Not Recovered/Not Resolved]
  - Paraesthesia [Recovered/Resolved]
